FAERS Safety Report 8353808 (Version 2)
Quarter: 2014Q1

REPORT INFORMATION
  Report Type: Spontaneous
  Country: US (occurrence: US)
  Receive Date: 20120125
  Receipt Date: 20140321
  Transmission Date: 20141002
  Serious: Yes (Death)
  Sender: FDA-Public Use
  Company Number: US-SANOFI-AVENTIS-2012SA004348

PATIENT
  Age: 68 Year
  Sex: Male

DRUGS (1)
  1. PLAVIX [Suspect]
     Indication: PRODUCT USED FOR UNKNOWN INDICATION
     Route: 048
     Dates: start: 20080723, end: 20101221

REACTIONS (2)
  - Multiple injuries [Fatal]
  - Cerebral haemorrhage [Fatal]
